FAERS Safety Report 9109201 (Version 1)
Quarter: 2013Q1

REPORT INFORMATION
  Report Type: Spontaneous
  Country: US (occurrence: US)
  Receive Date: 20130222
  Receipt Date: 20130222
  Transmission Date: 20140127
  Serious: No
  Sender: FDA-Public Use
  Company Number: US-ASTRAZENECA-2011SE61113

PATIENT
  Age: 66 Year
  Sex: Female

DRUGS (6)
  1. PRILOSEC OTC [Suspect]
     Route: 048
  2. NEXIUM [Suspect]
     Route: 048
  3. METRO GEL [Concomitant]
  4. NITROFUR MAC [Concomitant]
  5. CALCIUM [Concomitant]
  6. FISH OIL [Concomitant]

REACTIONS (2)
  - Gastrooesophageal reflux disease [Unknown]
  - Drug effect incomplete [Unknown]
